FAERS Safety Report 20209661 (Version 2)
Quarter: 2022Q1

REPORT INFORMATION
  Report Type: Spontaneous
  Country: US (occurrence: US)
  Receive Date: 20211221
  Receipt Date: 20220110
  Transmission Date: 20220424
  Serious: Yes (Hospitalization)
  Sender: FDA-Public Use
  Company Number: US-BIOVITRUM-2021US12123

PATIENT
  Age: 1 Year
  Sex: Male
  Weight: 7 kg

DRUGS (8)
  1. SYNAGIS [Suspect]
     Active Substance: PALIVIZUMAB
     Indication: Antiviral prophylaxis
     Dosage: DOSE: UNKNOWN
     Dates: start: 2020
  2. SYNAGIS [Suspect]
     Active Substance: PALIVIZUMAB
     Route: 030
  3. BACLOFEN [Concomitant]
     Active Substance: BACLOFEN
  4. CYPROHEPTADINE HYDROCHLORIDE [Concomitant]
     Active Substance: CYPROHEPTADINE HYDROCHLORIDE
     Dosage: MG/5 ML SYRUP
  5. VITAMINS [Concomitant]
     Active Substance: VITAMINS
     Dosage: 250-50 ML DROPS
  6. CLONAZEPAM [Concomitant]
     Active Substance: CLONAZEPAM
     Dosage: 0.12 MG TAB RAPDIS
  7. TOPAMAX [Concomitant]
     Active Substance: TOPIRAMATE
     Dosage: 15 MG CAP SPRINK
  8. EPINEPHRINE [Concomitant]
     Active Substance: EPINEPHRINE

REACTIONS (2)
  - Dyspnoea [Unknown]
  - Inappropriate schedule of product administration [Unknown]

NARRATIVE: CASE EVENT DATE: 20211210
